FAERS Safety Report 13213955 (Version 1)
Quarter: 2017Q1

REPORT INFORMATION
  Report Type: Spontaneous
  Country: US (occurrence: US)
  Receive Date: 20170210
  Receipt Date: 20170210
  Transmission Date: 20170428
  Serious: Yes (Hospitalization)
  Sender: FDA-Public Use
  Company Number: US-VIFOR (INTERNATIONAL) INC.-VIT-2017-01145

PATIENT
  Age: 58 Year
  Sex: Female

DRUGS (17)
  1. GABAPENTIN. [Concomitant]
     Active Substance: GABAPENTIN
  2. ROCALTROL [Concomitant]
     Active Substance: CALCITRIOL
  3. COLECALCIFEROL [Concomitant]
     Active Substance: CHOLECALCIFEROL
  4. VELTASSA [Suspect]
     Active Substance: PATIROMER
     Indication: HYPERKALAEMIA
     Route: 048
     Dates: start: 20160729
  5. NITROSTAT [Concomitant]
     Active Substance: NITROGLYCERIN
  6. BUPROPION HYDROCHLORIDE. [Concomitant]
     Active Substance: BUPROPION HYDROCHLORIDE
  7. LEVOTHYROXINE SODIUM. [Concomitant]
     Active Substance: LEVOTHYROXINE SODIUM
  8. PLAVIX [Concomitant]
     Active Substance: CLOPIDOGREL BISULFATE
  9. FISH OIL [Concomitant]
     Active Substance: FISH OIL
  10. LANTUS [Concomitant]
     Active Substance: INSULIN GLARGINE
  11. HUMALOG KWIKPEN [Concomitant]
     Active Substance: INSULIN LISPRO
  12. CARVEDILOL. [Concomitant]
     Active Substance: CARVEDILOL
  13. ELIQUIS [Concomitant]
     Active Substance: APIXABAN
  14. MULTAQ [Concomitant]
     Active Substance: DRONEDARONE
  15. ASCORBIC ACID. [Concomitant]
     Active Substance: ASCORBIC ACID
  16. ATORVASTATIN CALCIUM. [Concomitant]
     Active Substance: ATORVASTATIN CALCIUM
  17. NORVASC [Concomitant]
     Active Substance: AMLODIPINE BESYLATE

REACTIONS (2)
  - Hospitalisation [Unknown]
  - Adverse event [Unknown]

NARRATIVE: CASE EVENT DATE: 201601
